FAERS Safety Report 20859841 (Version 3)
Quarter: 2022Q2

REPORT INFORMATION
  Report Type: Spontaneous
  Country: US (occurrence: US)
  Receive Date: 20220523
  Receipt Date: 20220629
  Transmission Date: 20220720
  Serious: No
  Sender: FDA-Public Use
  Company Number: US-PFIZER INC-202200635392

PATIENT
  Sex: Male

DRUGS (1)
  1. GENOTROPIN [Suspect]
     Active Substance: SOMATROPIN
     Dosage: UNK

REACTIONS (1)
  - Device failure [Unknown]
